FAERS Safety Report 9999593 (Version 1)
Quarter: 2014Q1

REPORT INFORMATION
  Report Type: Spontaneous
  Country: DK (occurrence: DE)
  Receive Date: 20140312
  Receipt Date: 20140312
  Transmission Date: 20141002
  Serious: Yes (Other)
  Sender: FDA-Public Use
  Company Number: DE-FRI-1000060507

PATIENT
  Age: 36 Year
  Sex: Female

DRUGS (1)
  1. CITALOPRAM [Suspect]
     Indication: PANIC DISORDER
     Dosage: 40 MG
     Route: 048
     Dates: start: 20111002, end: 20120629

REACTIONS (2)
  - Foetal heart rate deceleration abnormality [Recovered/Resolved]
  - Caesarean section [Unknown]
